FAERS Safety Report 9913877 (Version 1)
Quarter: 2014Q1

REPORT INFORMATION
  Report Type: Spontaneous
  Country: US (occurrence: None)
  Receive Date: 20140219
  Receipt Date: 20140219
  Transmission Date: 20141002
  Serious: Yes (Death)
  Sender: FDA-Public Use
  Company Number: None

PATIENT
  Age: 58 Year
  Sex: Male
  Weight: 140.62 kg

DRUGS (2)
  1. ANDROGEL [Suspect]
     Indication: ASTHENIA
     Dosage: APPLY 3 PUMP IN MORN  ONCE DAILY  APPLIED TO A SURFACE, USUALLY THE SKIN
  2. ANDROGEL [Suspect]
     Indication: FATIGUE
     Dosage: APPLY 3 PUMP IN MORN  ONCE DAILY  APPLIED TO A SURFACE, USUALLY THE SKIN

REACTIONS (1)
  - Myocardial infarction [None]
